FAERS Safety Report 14937460 (Version 1)
Quarter: 2018Q2

REPORT INFORMATION
  Report Type: Spontaneous
  Country: US (occurrence: US)
  Receive Date: 20180525
  Receipt Date: 20180525
  Transmission Date: 20180711
  Serious: Yes (Life-Threatening, Hospitalization)
  Sender: FDA-Public Use
  Company Number: US-BRISTOL-MYERS SQUIBB COMPANY-BMS-2018-044493

PATIENT

DRUGS (1)
  1. ORENCIA [Suspect]
     Active Substance: ABATACEPT
     Indication: PRODUCT USED FOR UNKNOWN INDICATION
     Dosage: UNK
     Route: 042
     Dates: start: 20180504

REACTIONS (7)
  - Vomiting [Unknown]
  - Fatigue [Unknown]
  - Cough [Unknown]
  - Decreased appetite [Unknown]
  - Cystitis [Recovered/Resolved]
  - Nausea [Unknown]
  - Malnutrition [Unknown]

NARRATIVE: CASE EVENT DATE: 20180508
